FAERS Safety Report 14815300 (Version 1)
Quarter: 2018Q2

REPORT INFORMATION
  Report Type: Spontaneous
  Country: JP (occurrence: JP)
  Receive Date: 20180426
  Receipt Date: 20180426
  Transmission Date: 20180711
  Serious: Yes (Death)
  Sender: FDA-Public Use
  Company Number: JP-PFIZER INC-2018123102

PATIENT
  Age: 78 Year
  Sex: Female
  Weight: 44.8 kg

DRUGS (6)
  1. LYRICA [Suspect]
     Active Substance: PREGABALIN
     Indication: NEURALGIA
     Dosage: 75 MG, DAILY (25 MG IN THE MORNING AND 50 MG IN THE EVENING)
     Route: 048
     Dates: start: 20180320, end: 20180322
  2. LYRICA [Suspect]
     Active Substance: PREGABALIN
     Dosage: 75 MG, 1X/DAY(IN THE EVENING)
     Route: 048
     Dates: start: 20180330, end: 20180403
  3. OXIFAST [Suspect]
     Active Substance: OXYCODONE
     Dosage: UNK
  4. REFLEX [Suspect]
     Active Substance: MIRTAZAPINE
     Dosage: UNK
  5. LYRICA [Suspect]
     Active Substance: PREGABALIN
     Dosage: 150 MG, 2X/DAY (IN THE MORNING AND EVENING)
     Route: 048
     Dates: start: 20180323, end: 20180329
  6. ZYPREXA [Suspect]
     Active Substance: OLANZAPINE
     Dosage: UNK

REACTIONS (4)
  - Death [Fatal]
  - Somnolence [Unknown]
  - Dysphagia [Unknown]
  - Eyelid ptosis [Unknown]

NARRATIVE: CASE EVENT DATE: 20180412
